FAERS Safety Report 6719632-0 (Version None)
Quarter: 2010Q2

REPORT INFORMATION
  Report Type: 
  Country: None (occurrence: None)
  Receive Date: 20100511
  Receipt Date: 20100427
  Transmission Date: 20101027
  Serious: Yes (Hospitalization, Other)
  Sender: FDA-Public Use
  Company Number: US-ELI_LILLY_AND_COMPANY-US201005000317

PATIENT
  Sex: Female

DRUGS (10)
  1. FORTEO [Suspect]
     Indication: OSTEOPOROSIS
     Dosage: 20 UG, DAILY (1/D)
     Dates: start: 20090601
  2. VICODIN [Concomitant]
  3. XANAX [Concomitant]
  4. PROAIR HFA [Concomitant]
  5. ADVAIR DISKUS 100/50 [Concomitant]
  6. SPIRIVA [Concomitant]
  7. MICARDIS [Concomitant]
  8. LEVOTHYROXINE SODIUM [Concomitant]
  9. VITAMIN B-12 [Concomitant]
  10. CALCIUM W/VITAMIN D NOS [Concomitant]

REACTIONS (4)
  - BENIGN NEOPLASM OF THYROID GLAND [None]
  - COUGH [None]
  - EMOTIONAL DISTRESS [None]
  - THYROID CANCER [None]
